FAERS Safety Report 13576121 (Version 1)
Quarter: 2017Q2

REPORT INFORMATION
  Report Type: Spontaneous
  Country: US (occurrence: US)
  Receive Date: 20170524
  Receipt Date: 20170524
  Transmission Date: 20170830
  Serious: No
  Sender: FDA-Public Use
  Company Number: US-PFIZER INC-2017221911

PATIENT
  Age: 39 Year
  Sex: Male

DRUGS (4)
  1. SYNTHROID [Concomitant]
     Active Substance: LEVOTHYROXINE SODIUM
     Dosage: UNK
  2. OXYCONTIN [Concomitant]
     Active Substance: OXYCODONE HYDROCHLORIDE
     Dosage: UNK
  3. OXYCODONE [Concomitant]
     Active Substance: OXYCODONE
     Dosage: UNK
  4. SUTENT [Suspect]
     Active Substance: SUNITINIB MALATE
     Indication: PARAGANGLION NEOPLASM
     Dosage: 50 MG, CYCLIC; (28 DAYS ON/14 DAYS OFF)

REACTIONS (13)
  - Myalgia [Unknown]
  - Rash erythematous [Unknown]
  - Skin burning sensation [Unknown]
  - Nail discolouration [Unknown]
  - Neck pain [Not Recovered/Not Resolved]
  - Headache [Not Recovered/Not Resolved]
  - Tooth infection [Recovered/Resolved]
  - Toothache [Unknown]
  - Product use in unapproved indication [Unknown]
  - Perihepatic discomfort [Unknown]
  - Mouth ulceration [Unknown]
  - Pain in extremity [Unknown]
  - Rash macular [Unknown]
